FAERS Safety Report 7907900-6 (Version None)
Quarter: 2011Q4

REPORT INFORMATION
  Report Type: 
  Country: None (occurrence: None)
  Receive Date: 20111110
  Receipt Date: 20111108
  Transmission Date: 20120403
  Serious: Yes (Other)
  Sender: FDA-Public Use
  Company Number: GB-GILEAD-2011-0046371

PATIENT
  Age: 46 Year
  Sex: Female

DRUGS (2)
  1. EMTRICITABINE/TENOFOVIR DISOPROXIL FUMARATE [Suspect]
     Dosage: 1 DF, UNK
     Route: 048
  2. VIRAMUNE [Concomitant]
     Dosage: 400 MG, UNK
     Route: 048

REACTIONS (1)
  - ABORTION SPONTANEOUS [None]
